FAERS Safety Report 16531178 (Version 1)
Quarter: 2019Q3

REPORT INFORMATION
  Report Type: Spontaneous
  Country: IT (occurrence: IT)
  Receive Date: 20190704
  Receipt Date: 20190704
  Transmission Date: 20191004
  Serious: Yes (Other)
  Sender: FDA-Public Use
  Company Number: IT-ROCHE-2348558

PATIENT
  Age: 79 Year
  Sex: Male

DRUGS (4)
  1. IRINOTECAN [Suspect]
     Active Substance: IRINOTECAN
     Indication: COLON CANCER
     Dosage: MOST RECENT DOSE: 18/JUN/2019
     Route: 042
     Dates: start: 20190221
  2. AVASTIN [Suspect]
     Active Substance: BEVACIZUMAB
     Indication: COLON CANCER
     Dosage: STRENGTH: 25 MG/ML?MOST RECENT DOSE: 18/JUN/2019
     Route: 042
     Dates: start: 20190221
  3. DOXIFLURIDINE [Suspect]
     Active Substance: DOXIFLURIDINE
     Indication: COLON CANCER
     Dosage: MOST RECENT DOSE: 18/JUN/2019
     Route: 040
     Dates: start: 20190221
  4. FLUOROURACIL. [Suspect]
     Active Substance: FLUOROURACIL
     Indication: COLON CANCER
     Dosage: MOST RECENT DOSE: 18/JUN/2019
     Route: 042
     Dates: start: 20190221

REACTIONS (2)
  - Thrombocytopenia [Recovered/Resolved]
  - Anaemia [Recovered/Resolved]

NARRATIVE: CASE EVENT DATE: 20190510
